FAERS Safety Report 19096828 (Version 1)
Quarter: 2021Q2

REPORT INFORMATION
  Report Type: Spontaneous
  Country: US (occurrence: US)
  Receive Date: 20210405
  Receipt Date: 20210405
  Transmission Date: 20210717
  Serious: Yes (Life-Threatening, Disabling)
  Sender: FDA-Public Use
  Company Number: None

PATIENT
  Age: 50 Year
  Sex: Female
  Weight: 70.2 kg

DRUGS (17)
  1. OMEPRAZOLE. [Concomitant]
     Active Substance: OMEPRAZOLE
  2. PILOCARPINE. [Concomitant]
     Active Substance: PILOCARPINE
  3. SEROQUEL [Concomitant]
     Active Substance: QUETIAPINE FUMARATE
  4. TOPAMAX [Concomitant]
     Active Substance: TOPIRAMATE
  5. HYDROCODONE [Concomitant]
     Active Substance: HYDROCODONE
  6. VIIBRYD [Concomitant]
     Active Substance: VILAZODONE HYDROCHLORIDE
  7. VALACYCLOVIR [Concomitant]
     Active Substance: VALACYCLOVIR HYDROCHLORIDE
  8. ZOLOFT [Concomitant]
     Active Substance: SERTRALINE HYDROCHLORIDE
  9. HAIR SKIN AND NAIL VITAMINS [Concomitant]
  10. TEGRETOL [Concomitant]
     Active Substance: CARBAMAZEPINE
  11. TRILEPTAL [Concomitant]
     Active Substance: OXCARBAZEPINE
  12. NOVOLOG [Concomitant]
     Active Substance: INSULIN ASPART
  13. CLONAZEPAM. [Concomitant]
     Active Substance: CLONAZEPAM
  14. LAMICTAL [Suspect]
     Active Substance: LAMOTRIGINE
  15. GEODON [Concomitant]
     Active Substance: ZIPRASIDONE HYDROCHLORIDE\ZIPRASIDONE MESYLATE
  16. FLUCONAZOLE. [Concomitant]
     Active Substance: FLUCONAZOLE
  17. ZOFRAN [Concomitant]
     Active Substance: ONDANSETRON HYDROCHLORIDE

REACTIONS (14)
  - Serotonin syndrome [None]
  - Victim of sexual abuse [None]
  - Seizure [None]
  - Hallucination [None]
  - Abnormal behaviour [None]
  - Asthenia [None]
  - Urinary incontinence [None]
  - Amnesia [None]
  - Loss of consciousness [None]
  - Mental impairment [None]
  - Mood altered [None]
  - Renal pain [None]
  - Bedridden [None]
  - Renal impairment [None]

NARRATIVE: CASE EVENT DATE: 20200301
